FAERS Safety Report 9228279 (Version 2)
Quarter: 2013Q2

REPORT INFORMATION
  Report Type: Report from Study
  Country: AT (occurrence: AT)
  Receive Date: 20130412
  Receipt Date: 20130501
  Transmission Date: 20140414
  Serious: Yes (Death)
  Sender: FDA-Public Use
  Company Number: AT-ROCHE-1209330

PATIENT
  Sex: 0

DRUGS (4)
  1. ALTEPLASE [Suspect]
     Indication: MYOCARDIAL INFARCTION
     Route: 065
  2. ASPIRIN [Suspect]
     Indication: MYOCARDIAL INFARCTION
     Route: 048
  3. RAMIPRIL [Suspect]
     Indication: MYOCARDIAL INFARCTION
     Route: 048
  4. HEPARIN [Suspect]
     Indication: MYOCARDIAL INFARCTION
     Route: 042

REACTIONS (1)
  - Ventricle rupture [Fatal]
